FAERS Safety Report 18340681 (Version 1)
Quarter: 2020Q4

REPORT INFORMATION
  Report Type: Spontaneous
  Country: FR (occurrence: FR)
  Receive Date: 20201002
  Receipt Date: 20201002
  Transmission Date: 20210113
  Serious: Yes (Other)
  Sender: FDA-Public Use
  Company Number: FR-ACCORD-203744

PATIENT
  Age: 33 Year
  Sex: Male
  Weight: 120 kg

DRUGS (5)
  1. SERESTA [Concomitant]
     Active Substance: OXAZEPAM
  2. METHOTREXATE. [Suspect]
     Active Substance: METHOTREXATE
     Indication: PSORIASIS
     Route: 048
     Dates: start: 20180523, end: 20181022
  3. LEVOTHYROX [Concomitant]
     Active Substance: LEVOTHYROXINE
  4. FOLIC ACID. [Concomitant]
     Active Substance: FOLIC ACID
  5. TERALITHE [Concomitant]
     Active Substance: LITHIUM CARBONATE

REACTIONS (1)
  - Hepatocellular injury [Recovered/Resolved]

NARRATIVE: CASE EVENT DATE: 201810
